FAERS Safety Report 18278266 (Version 1)
Quarter: 2020Q3

REPORT INFORMATION
  Report Type: Spontaneous
  Country: US (occurrence: US)
  Receive Date: 20200917
  Receipt Date: 20200917
  Transmission Date: 20201103
  Serious: No
  Sender: FDA-Public Use
  Company Number: US-BIOGEN-2016BI00234405

PATIENT
  Age: 25 Year
  Sex: Female

DRUGS (1)
  1. TYSABRI [Suspect]
     Active Substance: NATALIZUMAB
     Indication: MULTIPLE SCLEROSIS
     Route: 065
     Dates: start: 20160411, end: 20161027

REACTIONS (11)
  - Fatigue [Recovered/Resolved]
  - Myalgia [Unknown]
  - Urinary tract infection [Unknown]
  - Headache [Unknown]
  - Abdominal pain upper [Unknown]
  - CD4 lymphocytes abnormal [Unknown]
  - Menorrhagia [Unknown]
  - Urticaria [Recovered/Resolved]
  - Pain [Recovered/Resolved]
  - Rash [Unknown]
  - Influenza [Unknown]

NARRATIVE: CASE EVENT DATE: 201604
